FAERS Safety Report 6878235-8 (Version None)
Quarter: 2010Q3

REPORT INFORMATION
  Report Type: 
  Country: None (occurrence: None)
  Receive Date: 20100728
  Receipt Date: 20100719
  Transmission Date: 20110219
  Serious: Yes (Other)
  Sender: FDA-Public Use
  Company Number: US-PFIZER INC-2010090166

PATIENT
  Sex: Female
  Weight: 53.515 kg

DRUGS (7)
  1. GEODON [Suspect]
     Indication: BIPOLAR DISORDER
     Dosage: UNK
     Route: 048
  2. GEODON [Suspect]
     Indication: ANGER
  3. GEODON [Suspect]
     Indication: AGGRESSION
  4. GEODON [Suspect]
     Indication: MANIA
  5. DEPAKOTE [Suspect]
     Indication: BIPOLAR DISORDER
     Dosage: 500 MG, 2X/DAY
     Route: 048
     Dates: start: 20080801, end: 20091101
  6. SYNTHROID [Concomitant]
     Indication: THYROID DISORDER
     Dosage: 75 UG, UNK
     Route: 048
  7. DESOGESTREL AND ETHINYL ESTRADIOL [Concomitant]
     Indication: MENSTRUAL CYCLE MANAGEMENT
     Dosage: 15 MG, UNK
     Dates: start: 20100101

REACTIONS (3)
  - DRUG DOSE OMISSION [None]
  - MANIA [None]
  - PLATELET COUNT DECREASED [None]
